FAERS Safety Report 10399514 (Version 1)
Quarter: 2014Q3

REPORT INFORMATION
  Report Type: Spontaneous
  Country: US (occurrence: None)
  Receive Date: 20140818
  Receipt Date: 20140818
  Transmission Date: 20150326
  Serious: Yes (Disabling, Other)
  Sender: FDA-Public Use
  Company Number: None

PATIENT
  Age: 72 Year
  Sex: Male
  Weight: 86.18 kg

DRUGS (1)
  1. ANAGRELIDEHCL 0.5MG TEVA [Suspect]
     Active Substance: ANAGRELIDE HYDROCHLORIDE
     Indication: ESSENTIAL THROMBOCYTHAEMIA
     Dosage: O.5MG X 4 PER DAY  FOUR TIMES DAILY  TAKEN BY MOUTH
     Route: 048
     Dates: start: 20140619, end: 20140711

REACTIONS (8)
  - Nausea [None]
  - Oedema peripheral [None]
  - Blood pressure increased [None]
  - Blood creatinine increased [None]
  - Blood uric acid increased [None]
  - Abdominal pain upper [None]
  - Palpitations [None]
  - Heart rate increased [None]

NARRATIVE: CASE EVENT DATE: 20140721
